FAERS Safety Report 6531306-8 (Version None)
Quarter: 2010Q1

REPORT INFORMATION
  Report Type: 
  Country: None (occurrence: None)
  Receive Date: 20100108
  Receipt Date: 20100104
  Transmission Date: 20100710
  Serious: Yes (Life-Threatening)
  Sender: FDA-Public Use
  Company Number: US-ASTRAZENECA-2010SE00100

PATIENT
  Age: 66 Month
  Sex: Male
  Weight: 23.6 kg

DRUGS (3)
  1. PULMICORT RESPULES [Suspect]
     Route: 055
     Dates: start: 20090101
  2. SINGULAIR [Concomitant]
     Dosage: BID
     Route: 048
  3. DAILY MULTI VIT [Concomitant]
     Dosage: DAILY
     Route: 048

REACTIONS (2)
  - DYSPNOEA [None]
  - LOWER RESPIRATORY TRACT INFECTION [None]
